FAERS Safety Report 7801779-9 (Version None)
Quarter: 2011Q4

REPORT INFORMATION
  Report Type: 
  Country: None (occurrence: None)
  Receive Date: 20111005
  Receipt Date: 20110920
  Transmission Date: 20120403
  Serious: Yes (Other)
  Sender: FDA-Public Use
  Company Number: 2011BN000084

PATIENT
  Age: 76 Year
  Sex: Female

DRUGS (7)
  1. HEPARIN [Concomitant]
  2. PROTAMINE SULFATE [Concomitant]
  3. DALTEPARIN SODIUM [Concomitant]
  4. ASPIRIN [Concomitant]
  5. MELPHALAN HYDROCHLORIDE [Suspect]
     Indication: MALIGNANT MELANOMA STAGE III
     Dosage: 7 MG/L; IV ,  25-30 MINUTES
     Route: 042
  6. CORTICOSTEROIDS [Concomitant]
  7. DACTINOMYCIN [Suspect]
     Indication: MALIGNANT MELANOMA STAGE III
     Dosage: ;IV; 25-30 MINUTES
     Route: 042

REACTIONS (5)
  - TOXICITY TO VARIOUS AGENTS [None]
  - URINARY TRACT INFECTION [None]
  - MEDICAL DEVICE COMPLICATION [None]
  - NEUTROPENIC SEPSIS [None]
  - SYSTEMIC LEAKAGE [None]
